FAERS Safety Report 21493275 (Version 2)
Quarter: 2023Q1

REPORT INFORMATION
  Report Type: Spontaneous
  Country: US (occurrence: US)
  Receive Date: 20221021
  Receipt Date: 20230323
  Transmission Date: 20230417
  Serious: No
  Sender: FDA-Public Use
  Company Number: US-ALLERGAN-2215513US

PATIENT
  Age: 57 Year
  Sex: Female
  Weight: 58.966 kg

DRUGS (1)
  1. COMBIGAN [Suspect]
     Active Substance: BRIMONIDINE TARTRATE\TIMOLOL MALEATE
     Indication: Glaucoma
     Dosage: 2 GTT, BID
     Dates: start: 2019, end: 20220511

REACTIONS (8)
  - Dry eye [Not Recovered/Not Resolved]
  - Eye disorder [Recovering/Resolving]
  - Ocular hyperaemia [Recovered/Resolved]
  - Eye allergy [Recovering/Resolving]
  - Condition aggravated [Unknown]
  - Hypersensitivity [Recovered/Resolved]
  - Eye irritation [Recovered/Resolved]
  - Hypersensitivity [Recovered/Resolved]

NARRATIVE: CASE EVENT DATE: 20220301
